FAERS Safety Report 11170922 (Version 2)
Quarter: 2015Q3

REPORT INFORMATION
  Report Type: Report from Study
  Country: US (occurrence: US)
  Receive Date: 20150608
  Receipt Date: 20150729
  Transmission Date: 20151125
  Serious: Yes (Hospitalization)
  Sender: FDA-Public Use
  Company Number: US-BIOGENIDEC-2015BI074420

PATIENT
  Age: 62 Year
  Sex: Female

DRUGS (1)
  1. AVONEX [Suspect]
     Active Substance: INTERFERON BETA-1A
     Indication: MULTIPLE SCLEROSIS
     Route: 030
     Dates: start: 20080912

REACTIONS (3)
  - Gait disturbance [Recovered/Resolved]
  - Fall [Recovered/Resolved]
  - Fibula fracture [Recovered/Resolved with Sequelae]

NARRATIVE: CASE EVENT DATE: 201411
